FAERS Safety Report 5411343-7 (Version None)
Quarter: 2007Q3

REPORT INFORMATION
  Report Type: 
  Country: None (occurrence: None)
  Receive Date: 20070810
  Receipt Date: 20070731
  Transmission Date: 20080115
  Serious: Yes (Hospitalization)
  Sender: FDA-Public Use
  Company Number: PHHO2007GB11728

PATIENT
  Age: 19 Year
  Sex: Female
  Weight: 71.8 kg

DRUGS (2)
  1. AEB071 VS MYFORTIC [Suspect]
     Indication: RENAL TRANSPLANT
     Dosage: 1440 MG DAILY
     Route: 048
     Dates: start: 20070612
  2. TACROLIMUS [Suspect]
     Indication: RENAL TRANSPLANT
     Dosage: 3 MG, BID
     Route: 048
     Dates: start: 20070612

REACTIONS (3)
  - BLOOD CREATININE INCREASED [None]
  - BLOOD UREA INCREASED [None]
  - URINARY TRACT INFECTION [None]
